FAERS Safety Report 4592584-8 (Version None)
Quarter: 2005Q1

REPORT INFORMATION
  Report Type: 
  Country: None (occurrence: None)
  Receive Date: 20050222
  Receipt Date: 20050204
  Transmission Date: 20050727
  Serious: No
  Sender: FDA-Public Use
  Company Number: 2005AP01014

PATIENT
  Sex: Female

DRUGS (3)
  1. LIGNOCAINE [Suspect]
     Indication: LOCAL ANAESTHESIA
     Dosage: 27.5 MG DAILY IV
     Route: 042
  2. DOTHIEPIN HYDROCHLORIDE [Concomitant]
  3. ALLOPURINOL [Concomitant]

REACTIONS (5)
  - COMA [None]
  - DYSKINESIA [None]
  - HEADACHE [None]
  - RESPIRATORY DISORDER [None]
  - TREMOR [None]
